FAERS Safety Report 7018643-8 (Version None)
Quarter: 2010Q3

REPORT INFORMATION
  Report Type: 
  Country: None (occurrence: None)
  Receive Date: 20100922
  Receipt Date: 20081117
  Transmission Date: 20110219
  Serious: Yes (Death, Hospitalization)
  Sender: FDA-Public Use
  Company Number: UK-2008-00421

PATIENT
  Age: 73 Year
  Sex: Male
  Weight: 100 kg

DRUGS (9)
  1. LISINOPRIL [Suspect]
     Indication: HYPERTENSION
     Dosage: 20 MG (1 IN 1 D), ORAL
     Route: 048
     Dates: start: 20060313, end: 20081028
  2. ATORVATATIN (UNKNOWN) [Suspect]
     Indication: HYPERCHOLESTEROLAEMIA
     Dosage: 40 MG (1 IN 1 D),
     Dates: start: 20061220
  3. BENDROFLUMETHIAZIDE (BENDROFLUAZIDE) (UNKNOWN) [Suspect]
     Indication: HYPERTENSION
     Dosage: 2.5 MG (1 IN 1 D), ORAL
     Route: 048
     Dates: start: 20030214, end: 20081028
  4. ADIZEM-XL (DILTIAZEM HYDROCHLORIDE) (UNKNOWN) [Concomitant]
  5. ASPIRIN [Concomitant]
  6. GTN (GLYCERYL TRINITRATE), (UNKNOWN) [Concomitant]
  7. METFORMIN HCL [Concomitant]
  8. NICORANDIL (UNKNOWN) [Concomitant]
  9. SOLIFENACIN (UNKNOWN) [Concomitant]

REACTIONS (2)
  - MULTI-ORGAN FAILURE [None]
  - PANCREATITIS ACUTE [None]
